FAERS Safety Report 6268510-2 (Version None)
Quarter: 2009Q3

REPORT INFORMATION
  Report Type: 
  Country: None (occurrence: None)
  Receive Date: 20090713
  Receipt Date: 20090713
  Transmission Date: 20100115
  Serious: No
  Sender: FDA-Public Use
  Company Number: None

PATIENT
  Age: 63 Year
  Sex: Male
  Weight: 102.5129 kg

DRUGS (1)
  1. PRAVASTATIN [Suspect]
     Indication: BLOOD CHOLESTEROL
     Dosage: 1 TABLET 1 DAY PO (DURATION: A YEAR)
     Route: 048
     Dates: start: 20080826, end: 20090629

REACTIONS (8)
  - ARTHRALGIA [None]
  - ASTHENIA [None]
  - CHROMATURIA [None]
  - DIARRHOEA [None]
  - FATIGUE [None]
  - FLATULENCE [None]
  - MUSCULAR WEAKNESS [None]
  - MYALGIA [None]
